FAERS Safety Report 23230914 (Version 5)
Quarter: 2025Q1

REPORT INFORMATION
  Report Type: Spontaneous
  Country: US (occurrence: US)
  Receive Date: 20231127
  Receipt Date: 20250228
  Transmission Date: 20250409
  Serious: Yes (Other)
  Sender: SANOFI AVENTIS
  Company Number: US-SA-2023SA310440

PATIENT
  Age: 62 Year
  Sex: Female
  Weight: 102 kg

DRUGS (13)
  1. DUPIXENT [Suspect]
     Active Substance: DUPILUMAB
     Indication: Dermatitis atopic
     Dosage: 300 MG, QOW
     Route: 058
  2. BOTOX [Concomitant]
     Active Substance: ONABOTULINUMTOXINA
     Indication: Migraine
  3. NP THYROID [Concomitant]
     Active Substance: LEVOTHYROXINE\LIOTHYRONINE
  4. FUROSEMIDE [Concomitant]
     Active Substance: FUROSEMIDE
  5. MIDODRINE [Concomitant]
     Active Substance: MIDODRINE
  6. TRAZODONE [Concomitant]
     Active Substance: TRAZODONE HYDROCHLORIDE
  7. HYDROCODONE BITARTRATE\IBUPROFEN [Concomitant]
     Active Substance: HYDROCODONE BITARTRATE\IBUPROFEN
  8. DIAZEPAM [Concomitant]
     Active Substance: DIAZEPAM
  9. METOPROLOL SUCCINATE [Concomitant]
     Active Substance: METOPROLOL SUCCINATE
  10. BREO ELLIPTA [Concomitant]
     Active Substance: FLUTICASONE FUROATE\VILANTEROL TRIFENATATE
  11. ATORVASTATIN CALCIUM [Concomitant]
     Active Substance: ATORVASTATIN CALCIUM
  12. PROGESTERONE [Concomitant]
     Active Substance: PROGESTERONE
  13. ESTRADIOL [Concomitant]
     Active Substance: ESTRADIOL

REACTIONS (9)
  - Choking [Unknown]
  - Dysphagia [Unknown]
  - Skin reaction [Unknown]
  - Skin burning sensation [Unknown]
  - Skin exfoliation [Unknown]
  - Injection site pain [Unknown]
  - Dermatitis atopic [Not Recovered/Not Resolved]
  - Product preparation error [Unknown]
  - Product storage error [Unknown]

NARRATIVE: CASE EVENT DATE: 20230701
